FAERS Safety Report 4803402-4 (Version None)
Quarter: 2005Q4

REPORT INFORMATION
  Report Type: 
  Country: None (occurrence: None)
  Receive Date: 20051019
  Receipt Date: 20051012
  Transmission Date: 20060501
  Serious: Yes (Hospitalization)
  Sender: FDA-Public Use
  Company Number: JP-JNJFOC-20051002554

PATIENT
  Sex: Female

DRUGS (8)
  1. TAVANIC [Suspect]
     Indication: BRONCHITIS
     Route: 048
  2. ALCOPHYLLEX [Concomitant]
  3. ALCOPHYLLEX [Concomitant]
  4. ALCOPHYLLEX [Concomitant]
  5. ALCOPHYLLEX [Concomitant]
  6. ALCOPHYLLEX [Concomitant]
     Indication: BRONCHITIS
  7. AUGMENTIN '125' [Concomitant]
  8. AUGMENTIN '125' [Concomitant]
     Indication: RESPIRATORY TRACT INFECTION

REACTIONS (4)
  - BRONCHOSPASM [None]
  - COMA [None]
  - DELIRIUM [None]
  - DYSTONIA [None]
